FAERS Safety Report 5871907-3 (Version None)
Quarter: 2008Q3

REPORT INFORMATION
  Report Type: 
  Country: None (occurrence: None)
  Receive Date: 20080905
  Receipt Date: 20080703
  Transmission Date: 20090109
  Serious: No
  Sender: FDA-Public Use
  Company Number: US-BAYER-200828180NA

PATIENT
  Sex: Female
  Weight: 73 kg

DRUGS (1)
  1. MIRENA [Suspect]
     Indication: CONTRACEPTION
     Route: 015
     Dates: start: 20080418, end: 20080429

REACTIONS (8)
  - ABDOMINAL PAIN [None]
  - DEPRESSION [None]
  - DIZZINESS [None]
  - ECZEMA [None]
  - IRRITABLE BOWEL SYNDROME [None]
  - PANIC ATTACK [None]
  - SINUSITIS [None]
  - VISION BLURRED [None]
